FAERS Safety Report 9354611 (Version 1)
Quarter: 2013Q2

REPORT INFORMATION
  Report Type: Spontaneous
  Country: US (occurrence: US)
  Receive Date: 20130618
  Receipt Date: 20130618
  Transmission Date: 20140414
  Serious: No
  Sender: FDA-Public Use
  Company Number: US-US-EMD SERONO, INC.-7019827

PATIENT
  Sex: Female

DRUGS (2)
  1. REBIF [Suspect]
     Indication: MULTIPLE SCLEROSIS
     Route: 058
     Dates: start: 20040613
  2. BACLOFEN [Concomitant]
     Dates: start: 201009

REACTIONS (8)
  - Anxiety [Not Recovered/Not Resolved]
  - Multiple sclerosis [Not Recovered/Not Resolved]
  - Bladder disorder [Unknown]
  - Abasia [Unknown]
  - Tremor [Not Recovered/Not Resolved]
  - Contusion [Unknown]
  - Insomnia [Unknown]
  - Depression [Not Recovered/Not Resolved]
